FAERS Safety Report 16412435 (Version 3)
Quarter: 2019Q2

REPORT INFORMATION
  Report Type: Spontaneous
  Country: US (occurrence: US)
  Receive Date: 20190610
  Receipt Date: 20190621
  Transmission Date: 20190711
  Serious: Yes (Other)
  Sender: FDA-Public Use
  Company Number: US-ASTRAZENECA-2018SF25544

PATIENT
  Age: 757 Month
  Sex: Male
  Weight: 112 kg

DRUGS (9)
  1. NEPHROCAPS [Concomitant]
     Active Substance: ASCORBIC ACID\BIOTIN\CYANOCOBALAMIN\FOLIC ACID\NIACIN\PANTOTHENIC ACID\PYRIDOXINE\RIBOFLAVIN\THIAMINE
  2. PREVACID [Suspect]
     Active Substance: LANSOPRAZOLE
     Route: 065
     Dates: start: 199505, end: 201612
  3. ATIVAN [Concomitant]
     Active Substance: LORAZEPAM
  4. PROSCAR [Concomitant]
     Active Substance: FINASTERIDE
  5. BUTALBITAL [Concomitant]
     Active Substance: BUTALBITAL
  6. PRILOSEC OTC [Suspect]
     Active Substance: OMEPRAZOLE MAGNESIUM
     Route: 048
     Dates: start: 199505, end: 201612
  7. XANAX [Concomitant]
     Active Substance: ALPRAZOLAM
  8. CLONIDINE. [Concomitant]
     Active Substance: CLONIDINE
  9. CARDURA [Concomitant]
     Active Substance: DOXAZOSIN MESYLATE

REACTIONS (7)
  - Acute kidney injury [Unknown]
  - Chronic kidney disease [Unknown]
  - Tubulointerstitial nephritis [Unknown]
  - Renal injury [Unknown]
  - End stage renal disease [Unknown]
  - Renal failure [Unknown]
  - Dyspepsia [Unknown]

NARRATIVE: CASE EVENT DATE: 201702
